FAERS Safety Report 4688594-2 (Version None)
Quarter: 2005Q2

REPORT INFORMATION
  Report Type: 
  Country: None (occurrence: None)
  Receive Date: 20050613
  Receipt Date: 19950707
  Transmission Date: 20051028
  Serious: Yes (Hospitalization, Other)
  Sender: FDA-Public Use
  Company Number: 199501898HAG2

PATIENT
  Age: 83 Year
  Sex: Male

DRUGS (4)
  1. TRITACE [Suspect]
     Indication: HYPERTENSION
     Route: 048
     Dates: start: 19930301
  2. LASIX [Suspect]
     Indication: CARDIAC FAILURE CONGESTIVE
     Route: 048
     Dates: start: 19930301
  3. CORDARONE [Suspect]
     Indication: ARRHYTHMIA
     Route: 048
     Dates: start: 19930301, end: 19950516
  4. MELLARIL [Suspect]
     Route: 048
     Dates: start: 19930301

REACTIONS (2)
  - CONFUSIONAL STATE [None]
  - HYPERTHYROIDISM [None]
